FAERS Safety Report 7140982-0 (Version None)
Quarter: 2010Q4

REPORT INFORMATION
  Report Type: 
  Country: None (occurrence: None)
  Receive Date: 20101122
  Receipt Date: 20101109
  Transmission Date: 20110411
  Serious: Yes (Hospitalization)
  Sender: FDA-Public Use
  Company Number: 018024

PATIENT
  Sex: Male

DRUGS (1)
  1. KEPPRA [Suspect]
     Dosage: (500 MG (2 TABS) DAILY)

REACTIONS (11)
  - ANXIETY [None]
  - CONVULSION [None]
  - DIZZINESS [None]
  - DRUG DOSE OMISSION [None]
  - FEELING ABNORMAL [None]
  - IMPRISONMENT [None]
  - IRRITABILITY [None]
  - MEMORY IMPAIRMENT [None]
  - MENTAL DISORDER [None]
  - TREATMENT NONCOMPLIANCE [None]
  - UNEVALUABLE EVENT [None]
